FAERS Safety Report 25135939 (Version 2)
Quarter: 2025Q2

REPORT INFORMATION
  Report Type: Spontaneous
  Country: FR (occurrence: FR)
  Receive Date: 20250328
  Receipt Date: 20250507
  Transmission Date: 20250716
  Serious: Yes (Other)
  Sender: BRISTOL-MYERS SQUIBB COMPANY
  Company Number: None

PATIENT
  Age: 1 Day
  Sex: Male
  Weight: 2.225 kg

DRUGS (10)
  1. ELIQUIS [Suspect]
     Active Substance: APIXABAN
     Indication: Product used for unknown indication
     Dosage: 1 MORNING, 1 EVENING
     Route: 064
     Dates: end: 20240104
  2. FUROSEMIDE [Suspect]
     Active Substance: FUROSEMIDE
     Indication: Product used for unknown indication
     Route: 064
     Dates: end: 20240104
  3. FUROSEMIDE [Suspect]
     Active Substance: FUROSEMIDE
     Dosage: 40MG/DAY, THEN INCREASED DURING PREGNANCY TO 80 MG/DAY
     Route: 064
  4. ALDACTONE [Suspect]
     Active Substance: SPIRONOLACTONE
     Indication: Product used for unknown indication
     Dosage: SCORED FILM-COATED TABLET
     Route: 064
     Dates: end: 20240104
  5. DAPAGLIFLOZIN [Suspect]
     Active Substance: DAPAGLIFLOZIN
     Indication: Product used for unknown indication
     Route: 064
     Dates: end: 20240104
  6. ENTRESTO [Suspect]
     Active Substance: SACUBITRIL\VALSARTAN
     Indication: Product used for unknown indication
     Dosage: 1 MORNING, 1 EVENING, STRENGTH: 49MG/51 MG, FILM-COATED TABLET.
     Route: 064
     Dates: end: 20240104
  7. BISOPROLOL FUMARATE [Suspect]
     Active Substance: BISOPROLOL FUMARATE
     Indication: Product used for unknown indication
     Route: 064
     Dates: end: 20240104
  8. INNOHEP [Suspect]
     Active Substance: TINZAPARIN SODIUM
     Indication: Product used for unknown indication
     Dosage: 175 UL/KG/D
     Route: 064
     Dates: start: 20240122, end: 20240724
  9. ENOXAPARIN SODIUM [Suspect]
     Active Substance: ENOXAPARIN SODIUM
     Indication: Product used for unknown indication
     Route: 064
     Dates: start: 20240104, end: 20240122
  10. ENOXAPARIN SODIUM [Suspect]
     Active Substance: ENOXAPARIN SODIUM
     Dosage: 6000 UL ANTI-XA/0.6 ML, 6000 ULX2 /DAY
     Route: 064
     Dates: end: 20240104

REACTIONS (3)
  - Premature baby [Unknown]
  - Low birth weight baby [Recovered/Resolved]
  - Foetal exposure during pregnancy [Unknown]

NARRATIVE: CASE EVENT DATE: 20240724
